FAERS Safety Report 5589977-9 (Version None)
Quarter: 2008Q1

REPORT INFORMATION
  Report Type: 
  Country: None (occurrence: None)
  Receive Date: 20080114
  Receipt Date: 20080103
  Transmission Date: 20080703
  Serious: Yes (Hospitalization)
  Sender: FDA-Public Use
  Company Number: US-KINGPHARMUSA00001-K200800008

PATIENT

DRUGS (2)
  1. SEPTRA [Suspect]
  2. NITROFLURANE COMPOUND [Suspect]

REACTIONS (2)
  - HYPERSENSITIVITY [None]
  - URINARY TRACT INFECTION [None]
